FAERS Safety Report 25936673 (Version 2)
Quarter: 2025Q4

REPORT INFORMATION
  Report Type: Report from Study
  Country: EU (occurrence: EU)
  Receive Date: 20251017
  Receipt Date: 20251029
  Transmission Date: 20260118
  Serious: Yes (Hospitalization)
  Sender: BridgeBio Pharma
  Company Number: EU-BAYER-2025A133906

PATIENT
  Sex: Male

DRUGS (1)
  1. ACORAMIDIS [Suspect]
     Active Substance: ACORAMIDIS
     Dosage: UNK
     Dates: start: 20250415

REACTIONS (1)
  - Pulmonary oedema [Recovering/Resolving]
